FAERS Safety Report 20601019 (Version 1)
Quarter: 2022Q1

REPORT INFORMATION
  Report Type: Spontaneous
  Country: US (occurrence: US)
  Receive Date: 20220316
  Receipt Date: 20220316
  Transmission Date: 20220423
  Serious: No
  Sender: FDA-Public Use
  Company Number: US-GLENMARK PHARMACEUTICALS-2022GMK069835

PATIENT

DRUGS (1)
  1. CLOTRIMAZOLE CREAM 1% [Suspect]
     Active Substance: CLOTRIMAZOLE
     Indication: Fungal skin infection
     Dosage: UNK, BID
     Route: 061
     Dates: start: 20220108

REACTIONS (5)
  - Application site dryness [Unknown]
  - Application site irritation [Unknown]
  - Application site pruritus [Unknown]
  - Application site exfoliation [Unknown]
  - Application site pain [Unknown]
